FAERS Safety Report 6735045-X (Version None)
Quarter: 2010Q2

REPORT INFORMATION
  Report Type: 
  Country: None (occurrence: None)
  Receive Date: 20100521
  Receipt Date: 20100512
  Transmission Date: 20101027
  Serious: Yes (Hospitalization)
  Sender: FDA-Public Use
  Company Number: ES-BAYER-201022882GPV

PATIENT
  Age: 66 Year
  Sex: Male
  Weight: 78 kg

DRUGS (20)
  1. SORAFENIB [Suspect]
     Indication: COLORECTAL CANCER
     Dosage: TOTAL DAILY DOSE: 800 MG  UNIT DOSE: 200 MG
     Route: 048
     Dates: start: 20100208, end: 20100304
  2. OXALIPLATIN [Suspect]
     Indication: COLORECTAL CANCER METASTATIC
     Dosage: 170
     Route: 042
     Dates: start: 20100208, end: 20100208
  3. OXALIPLATIN [Suspect]
     Dosage: 170
     Route: 042
     Dates: start: 20100222, end: 20100222
  4. OXALIPLATIN [Suspect]
     Dosage: 170
     Route: 042
     Dates: start: 20100308, end: 20100308
  5. OXALIPLATIN [Suspect]
     Dosage: 170
     Route: 042
     Dates: start: 20100322, end: 20100322
  6. LEUCOVORIN CALCIUM [Suspect]
     Indication: COLORECTAL CANCER METASTATIC
     Dosage: 800
     Route: 042
     Dates: start: 20100222, end: 20100222
  7. LEUCOVORIN CALCIUM [Suspect]
     Dosage: 800
     Route: 042
     Dates: start: 20100208, end: 20100208
  8. LEUCOVORIN CALCIUM [Suspect]
     Dosage: 800
     Route: 042
     Dates: start: 20100308, end: 20100308
  9. LEUCOVORIN CALCIUM [Suspect]
     Dosage: 800
     Route: 042
     Dates: start: 20100322, end: 20100322
  10. FLUOROURACIL [Suspect]
     Indication: COLORECTAL CANCER METASTATIC
     Dosage: 800
     Route: 040
     Dates: start: 20100222
  11. FLUOROURACIL [Suspect]
     Dosage: 800
     Route: 040
     Dates: start: 20100208
  12. FLUOROURACIL [Suspect]
     Dosage: 800
     Route: 040
     Dates: start: 20100322
  13. FLUOROURACIL [Suspect]
     Dosage: 800
     Route: 040
     Dates: start: 20100308
  14. FLUOROURACIL [Suspect]
     Dosage: 4800
     Route: 041
     Dates: start: 20100322, end: 20100324
  15. FLUOROURACIL [Suspect]
     Dosage: 4800
     Route: 041
     Dates: start: 20100308, end: 20100310
  16. FLUOROURACIL [Suspect]
     Dosage: 4800
     Route: 041
     Dates: start: 20100222, end: 20100224
  17. FLUOROURACIL [Suspect]
     Dosage: 4800
     Route: 041
     Dates: start: 20100208, end: 20100210
  18. OMEPRAZOLE [Concomitant]
     Indication: PROPHYLAXIS
     Route: 048
     Dates: start: 20100113
  19. ONDANSETRON [Concomitant]
     Indication: PREMEDICATION
     Dates: start: 20100208
  20. DEXAMETHASONE [Concomitant]
     Indication: PREMEDICATION
     Dates: start: 20100208

REACTIONS (1)
  - INTESTINAL OBSTRUCTION [None]
